FAERS Safety Report 16142044 (Version 4)
Quarter: 2019Q2

REPORT INFORMATION
  Report Type: Spontaneous
  Country: US (occurrence: US)
  Receive Date: 20190401
  Receipt Date: 20190429
  Transmission Date: 20190711
  Serious: Yes (Other)
  Sender: FDA-Public Use
  Company Number: US-SA-2019SA047796

PATIENT
  Age: 60 Year
  Sex: Female

DRUGS (1)
  1. AUBAGIO [Suspect]
     Active Substance: TERIFLUNOMIDE
     Indication: MULTIPLE SCLEROSIS
     Dosage: 14 MG, QD
     Route: 048
     Dates: start: 20160825

REACTIONS (4)
  - Balance disorder [Unknown]
  - Fall [Unknown]
  - Multiple sclerosis relapse [Unknown]
  - Multiple sclerosis [Unknown]
